FAERS Safety Report 4861663-X (Version None)
Quarter: 2005Q4

REPORT INFORMATION
  Report Type: 
  Country: None (occurrence: None)
  Receive Date: 20051129
  Receipt Date: 20050823
  Transmission Date: 20060501
  Serious: Yes (Other)
  Sender: FDA-Public Use
  Company Number: WAES 0508USA03774

PATIENT
  Age: 56 Year
  Sex: Male
  Weight: 91.6266 kg

DRUGS (4)
  1. VYTORIN [Suspect]
     Indication: BLOOD CHOLESTEROL INCREASED
     Dosage: 10-40 MG DAILY/PO
     Route: 048
     Dates: start: 20050103, end: 20050810
  2. VYTORIN [Suspect]
     Indication: HYPERLIPIDAEMIA
     Dosage: 10-40 MG DAILY/PO
     Route: 048
     Dates: start: 20050103, end: 20050810
  3. NEXIUM [Concomitant]
  4. ISOSORBIDE MONONITRATE [Concomitant]

REACTIONS (4)
  - BLOOD CREATINE PHOSPHOKINASE INCREASED [None]
  - JOINT SWELLING [None]
  - MYALGIA [None]
  - OEDEMA PERIPHERAL [None]
